FAERS Safety Report 5889878-2 (Version None)
Quarter: 2008Q3

REPORT INFORMATION
  Report Type: 
  Country: None (occurrence: None)
  Receive Date: 20080919
  Receipt Date: 20080911
  Transmission Date: 20090109
  Serious: Yes (Hospitalization)
  Sender: FDA-Public Use
  Company Number: FR-AVENTIS-200813302FR

PATIENT
  Age: 59 Year
  Sex: Female

DRUGS (7)
  1. CELECTOL [Suspect]
     Route: 048
     Dates: end: 20080718
  2. DAONIL FAIBLE 1.25 MG [Suspect]
     Route: 048
     Dates: end: 20080718
  3. XATRAL                             /00975301/ [Suspect]
     Route: 048
     Dates: end: 20080718
  4. TAHOR [Suspect]
     Route: 048
     Dates: end: 20080718
  5. OMEPRAZOLE [Suspect]
     Route: 048
     Dates: end: 20080718
  6. LERCAN [Suspect]
     Route: 048
     Dates: end: 20080718
  7. FLUDEX                             /00340101/ [Suspect]
     Route: 048
     Dates: end: 20080718

REACTIONS (5)
  - CHOLESTASIS [None]
  - CHOLESTATIC LIVER INJURY [None]
  - CYTOLYTIC HEPATITIS [None]
  - RENAL FAILURE ACUTE [None]
  - RHABDOMYOLYSIS [None]
